FAERS Safety Report 5535169-9 (Version None)
Quarter: 2007Q4

REPORT INFORMATION
  Report Type: 
  Country: None (occurrence: None)
  Receive Date: 20071206
  Receipt Date: 20071129
  Transmission Date: 20080405
  Serious: Yes (Hospitalization)
  Sender: FDA-Public Use
  Company Number: PHHO2007KR17700

PATIENT
  Age: 63 Year
  Sex: Female
  Weight: 50 kg

DRUGS (7)
  1. NILOTINIB VS IMATINIB [Suspect]
     Indication: GASTROINTESTINAL STROMAL TUMOUR
     Dosage: 400 MG, BID
     Route: 048
     Dates: start: 20071031
  2. NILOTINIB VS IMATINIB [Suspect]
     Dosage: 400 MG, BID
     Route: 048
     Dates: start: 20070913, end: 20071022
  3. SYNTHROID [Concomitant]
  4. CONOFEN [Concomitant]
  5. MESULID [Concomitant]
  6. ULTRACET [Concomitant]
  7. EPERISONE HYDROCHLORIDE [Concomitant]

REACTIONS (6)
  - DISEASE PROGRESSION [None]
  - DUODENAL OPERATION [None]
  - DUODENAL STENOSIS [None]
  - DUODENAL ULCER [None]
  - ENDOSCOPY UPPER GASTROINTESTINAL TRACT [None]
  - GASTROINTESTINAL HAEMORRHAGE [None]
